FAERS Safety Report 9272458 (Version 4)
Quarter: 2013Q4

REPORT INFORMATION
  Report Type: Spontaneous
  Country: GB (occurrence: GB)
  Receive Date: 20130506
  Receipt Date: 20131024
  Transmission Date: 20140711
  Serious: Yes (Hospitalization, Other)
  Sender: FDA-Public Use
  Company Number: PHHY2013GB042628

PATIENT
  Sex: 0

DRUGS (20)
  1. METHOTREXATE [Suspect]
     Dosage: UNK UKN, UNK
     Dates: start: 201001
  2. METHOTREXATE [Suspect]
     Dosage: UNK UKN, UNK
     Dates: start: 201007
  3. METHOTREXATE [Suspect]
     Dosage: UNK UKN, UNK
     Dates: start: 201101
  4. ROACTEMRA [Suspect]
     Indication: RHEUMATOID ARTHRITIS
     Dosage: 8 MG/KG, QMO
     Route: 042
     Dates: start: 201104
  5. ROACTEMRA [Suspect]
     Dosage: 625 MG, QMO
     Route: 042
     Dates: start: 20120823
  6. RITUXIMAB [Suspect]
     Indication: PRODUCT USED FOR UNKNOWN INDICATION
     Dosage: UNK UKN, UNK
     Route: 042
     Dates: start: 201001
  7. RITUXIMAB [Suspect]
     Dosage: UNK UKN, UNK
     Route: 042
     Dates: start: 201007
  8. RITUXIMAB [Suspect]
     Dosage: UNK UKN, UNK
     Route: 042
     Dates: start: 201101
  9. RITUXIMAB [Suspect]
     Route: 042
     Dates: start: 201001
  10. PREDNISOLONE [Concomitant]
     Dosage: 5 MG, UNK
     Route: 065
  11. THYROXINE [Concomitant]
     Dosage: 150 UG, UNK
  12. GABAPENTIN [Concomitant]
     Dosage: 300 MG, 3X/DAY
     Route: 065
  13. CITALOPRAM [Concomitant]
     Dosage: 20 MG, UNK
     Route: 065
  14. CITALOPRAM [Concomitant]
     Route: 065
  15. INSULIN [Concomitant]
     Dosage: UNK UKN, UNK
  16. HYDROXYCHLOROQUINE [Concomitant]
     Dosage: 200 MG, ON ALTERNATE DAYS
     Route: 048
  17. HYDROXYCHLOROQUINE [Concomitant]
     Dosage: ON ALTERNATE DAYS
     Route: 065
  18. OXYCODONE [Concomitant]
     Indication: PAIN
     Dosage: 40 MG, UNK
  19. LEVOTHYROXINE [Concomitant]
     Indication: HYPOTHYROIDISM
     Dosage: 180 UG, UNK
  20. BISOPROLOL [Concomitant]
     Indication: HYPERTENSION
     Dosage: 5 MG, UNK

REACTIONS (6)
  - Pelvic inflammatory disease [Unknown]
  - Neoplasm [Unknown]
  - Cellulitis [Not Recovered/Not Resolved]
  - Alopecia [Unknown]
  - Nausea [Unknown]
  - Endometriosis [Not Recovered/Not Resolved]
